FAERS Safety Report 15251728 (Version 2)
Quarter: 2018Q3

REPORT INFORMATION
  Report Type: Spontaneous
  Country: US (occurrence: US)
  Receive Date: 20180807
  Receipt Date: 20180815
  Transmission Date: 20181010
  Serious: Yes (Death)
  Sender: FDA-Public Use
  Company Number: US-BEH-2018093483

PATIENT
  Age: 61 Year
  Sex: Male

DRUGS (1)
  1. PRIVIGEN [Suspect]
     Active Substance: HUMAN IMMUNOGLOBULIN G
     Indication: CHRONIC INFLAMMATORY DEMYELINATING POLYRADICULONEUROPATHY
     Dosage: 140 G, QOW
     Route: 042
     Dates: start: 20170322

REACTIONS (2)
  - Coronary artery perforation [Fatal]
  - Cardiac procedure complication [Fatal]

NARRATIVE: CASE EVENT DATE: 20180802
